FAERS Safety Report 18984846 (Version 1)
Quarter: 2021Q1

REPORT INFORMATION
  Report Type: Spontaneous
  Country: GB (occurrence: GB)
  Receive Date: 20210308
  Receipt Date: 20210308
  Transmission Date: 20210420
  Serious: No
  Sender: FDA-Public Use
  Company Number: GB-LUPIN PHARMACEUTICALS INC.-2021-02898

PATIENT
  Age: 41 Year
  Sex: Female

DRUGS (6)
  1. DALTEPARIN [Suspect]
     Active Substance: DALTEPARIN
     Indication: DEEP VEIN THROMBOSIS
     Dosage: UNK
     Route: 058
  2. FONDAPARINUX [Suspect]
     Active Substance: FONDAPARINUX
     Indication: DEEP VEIN THROMBOSIS
     Dosage: UNK
     Route: 058
  3. ERYTHROMYCIN. [Suspect]
     Active Substance: ERYTHROMYCIN
     Indication: CELLULITIS
     Dosage: UNK
     Route: 065
  4. BETAMETHASONE. [Suspect]
     Active Substance: BETAMETHASONE
     Indication: TYPE IV HYPERSENSITIVITY REACTION
     Dosage: UNK
     Route: 061
  5. ENOXAPARIN [Suspect]
     Active Substance: ENOXAPARIN
     Indication: DEEP VEIN THROMBOSIS
     Dosage: UNK
     Route: 065
  6. HYDROMOL [ISOPROPYL MYRISTATE;PARAFFIN, LIQUID] [Suspect]
     Active Substance: ISOPROPYL MYRISTATE\PARAFFIN
     Indication: TYPE IV HYPERSENSITIVITY REACTION
     Dosage: UNK 0.1%
     Route: 061

REACTIONS (1)
  - Exposure during pregnancy [Unknown]
